FAERS Safety Report 8902049 (Version 1)
Quarter: 2012Q4

REPORT INFORMATION
  Report Type: 
  Country: US (occurrence: US)
  Receive Date: 20121112
  Receipt Date: 20121112
  Transmission Date: 20130627
  Serious: Yes (Hospitalization)
  Sender: FDA-Public Use
  Company Number: US-BAYER-2012-115961

PATIENT
  Age: 33 Year
  Sex: Female

DRUGS (6)
  1. YAZ [Suspect]
  2. PERCOCET [Concomitant]
  3. IRON SULFATE [Concomitant]
  4. MULTIVITAMIN [Concomitant]
  5. OXYCODONE [Concomitant]
     Indication: PAIN
  6. FLONASE [Concomitant]

REACTIONS (2)
  - Deep vein thrombosis [None]
  - Pulmonary embolism [None]
